FAERS Safety Report 6589805-9 (Version None)
Quarter: 2010Q1

REPORT INFORMATION
  Report Type: 
  Country: None (occurrence: None)
  Receive Date: 20100219
  Receipt Date: 20100209
  Transmission Date: 20100710
  Serious: Yes (Hospitalization, Other)
  Sender: FDA-Public Use
  Company Number: FR-JNJFOC-20100206463

PATIENT
  Age: 50 Year
  Sex: Female

DRUGS (7)
  1. REMICADE [Suspect]
     Indication: SARCOIDOSIS
     Route: 042
  2. REMICADE [Suspect]
     Route: 042
  3. REMICADE [Suspect]
     Route: 042
  4. REMICADE [Suspect]
     Route: 042
  5. REMICADE [Suspect]
     Route: 042
  6. STEROIDS NOS [Concomitant]
  7. METHOTREXATE [Concomitant]

REACTIONS (5)
  - CUTANEOUS SARCOIDOSIS [None]
  - DRUG INEFFECTIVE FOR UNAPPROVED INDICATION [None]
  - FATIGUE [None]
  - SARCOIDOSIS [None]
  - WEIGHT DECREASED [None]
